FAERS Safety Report 15616011 (Version 1)
Quarter: 2018Q4

REPORT INFORMATION
  Report Type: Spontaneous
  Country: US (occurrence: US)
  Receive Date: 20181114
  Receipt Date: 20181114
  Transmission Date: 20190205
  Serious: Yes (Hospitalization)
  Sender: FDA-Public Use
  Company Number: US-TEVA-2018-US-974249

PATIENT
  Age: 36 Year
  Sex: Male

DRUGS (4)
  1. ZOLPIDEM [Suspect]
     Active Substance: ZOLPIDEM\ZOLPIDEM TARTRATE
     Route: 065
  2. CARISOPRODOL. [Suspect]
     Active Substance: CARISOPRODOL
     Route: 065
  3. HYDROCODONE-APAP [Suspect]
     Active Substance: ACETAMINOPHEN\HYDROCODONE
     Dosage: 5-15 G OF PARACETAMOL DAILY IN OPIOID-PARACETAMOL FORM
     Route: 048
  4. OXYCODONE AND ACETAMINOPHEN [Suspect]
     Active Substance: ACETAMINOPHEN\OXYCODONE HYDROCHLORIDE
     Dosage: 5-15 G OF PARACETAMOL DAILY IN OPIOID-PARACETAMOL FORM
     Route: 048

REACTIONS (6)
  - Drug abuse [Recovering/Resolving]
  - Drug-induced liver injury [Recovering/Resolving]
  - Lactic acidosis [Recovering/Resolving]
  - Overdose [Recovering/Resolving]
  - Toxicity to various agents [Recovering/Resolving]
  - Encephalopathy [Recovering/Resolving]
